FAERS Safety Report 12524383 (Version 2)
Quarter: 2016Q3

REPORT INFORMATION
  Report Type: Spontaneous
  Country: US (occurrence: US)
  Receive Date: 20160704
  Receipt Date: 20160911
  Transmission Date: 20161109
  Serious: No
  Sender: FDA-Public Use
  Company Number: US-ASTRAZENECA-2016SE69255

PATIENT
  Age: 20706 Day
  Sex: Female
  Weight: 70 kg

DRUGS (16)
  1. NYSTATIN. [Concomitant]
     Active Substance: NYSTATIN
     Dosage: 100000 UNITS/ML SUSPENSION 5 ML 4 TIMES A DAY 1/2 DOSE ON EACH SIDE OF MOUTH
  2. STOOL SOFTENER [Concomitant]
     Active Substance: DOCUSATE CALCIUM
     Dosage: DAILY
  3. AMITIZA [Concomitant]
     Active Substance: LUBIPROSTONE
  4. LINZESS [Concomitant]
     Active Substance: LINACLOTIDE
     Dosage: 145 MEG TABLETS 1 TABLET ONCE DAILY
  5. PANTOPRAZOLE [Concomitant]
     Active Substance: PANTOPRAZOLE SODIUM
  6. VITAMIN [Concomitant]
     Active Substance: VITAMINS
  7. MIRALAX [Concomitant]
     Active Substance: POLYETHYLENE GLYCOL 3350
     Dosage: POWDER FOR RECONSTITUTION 17 G ONCE A DAY IN 8 OZ OF FLUID
  8. PREDNISONE. [Concomitant]
     Active Substance: PREDNISONE
  9. FAMCICLOVIR. [Concomitant]
     Active Substance: FAMCICLOVIR
  10. MORPHINE [Concomitant]
     Active Substance: MORPHINE
     Dosage: 15.0MG EVERY 4 - 6 HOURS
  11. GABAPENTIN. [Concomitant]
     Active Substance: GABAPENTIN
  12. MOVANTIK [Suspect]
     Active Substance: NALOXEGOL OXALATE
     Indication: CONSTIPATION
     Route: 048
     Dates: start: 20160608, end: 20160609
  13. MAGNESIUM [Concomitant]
     Active Substance: MAGNESIUM
  14. MULTIVITAMIN [Concomitant]
     Active Substance: VITAMINS
  15. METHOCARBAMOL. [Concomitant]
     Active Substance: METHOCARBAMOL
     Dosage: 500.0MG AS REQUIRED
  16. ZOFRAN [Concomitant]
     Active Substance: ONDANSETRON HYDROCHLORIDE
     Dosage: 4.0MG EVERY 8 - 12 HOURS

REACTIONS (4)
  - Nausea [Recovered/Resolved]
  - Abdominal pain [Unknown]
  - Feeling abnormal [Recovered/Resolved]
  - Muscle spasms [Recovered/Resolved]

NARRATIVE: CASE EVENT DATE: 20160608
